FAERS Safety Report 7425613-4 (Version None)
Quarter: 2011Q2

REPORT INFORMATION
  Report Type: 
  Country: None (occurrence: None)
  Receive Date: 20110420
  Receipt Date: 20110413
  Transmission Date: 20111010
  Serious: Yes (Other)
  Sender: FDA-Public Use
  Company Number: DE-PFIZER INC-2011067923

PATIENT
  Age: 33 Year
  Sex: Female
  Weight: 50 kg

DRUGS (2)
  1. ZYVOX [Suspect]
     Indication: SEPSIS
  2. ZYVOX [Suspect]
     Indication: PNEUMONIA
     Dosage: UNK
     Dates: start: 20101201, end: 20110101

REACTIONS (2)
  - TINNITUS [None]
  - DEAFNESS UNILATERAL [None]
